FAERS Safety Report 6574223-X (Version None)
Quarter: 2010Q1

REPORT INFORMATION
  Report Type: 
  Country: None (occurrence: None)
  Receive Date: 20100201
  Receipt Date: 20100119
  Transmission Date: 20100710
  Serious: Yes (Hospitalization, Other)
  Sender: FDA-Public Use
  Company Number: CLOF-1000814

PATIENT
  Age: 66 Year
  Sex: Female
  Weight: 50 kg

DRUGS (7)
  1. EVOLTRA (CLOFARABINE) SOLUTION FOR INFUSION [Suspect]
     Indication: ACUTE MYELOID LEUKAEMIA
     Dosage: 34 MG, QOD, INTRAVENOUS, 32 MG QDX5
     Route: 042
     Dates: start: 20090513, end: 20090517
  2. EVOLTRA (CLOFARABINE) SOLUTION FOR INFUSION [Suspect]
     Indication: ACUTE MYELOID LEUKAEMIA
     Dosage: 34 MG, QOD, INTRAVENOUS, 32 MG QDX5
     Route: 042
     Dates: start: 20090617, end: 20090621
  3. DAUNORUBICIN HCL [Suspect]
     Indication: ACUTE MYELOID LEUKAEMIA
     Dosage: 85 MG, QOD, 80 MG QOD, INTRAVENOUS
     Route: 042
     Dates: start: 20090513, end: 20090517
  4. DAUNORUBICIN HCL [Suspect]
     Indication: ACUTE MYELOID LEUKAEMIA
     Dosage: 85 MG, QOD, 80 MG QOD, INTRAVENOUS
     Route: 042
     Dates: start: 20090617, end: 20090621
  5. MYLOTARG [Suspect]
     Indication: ACUTE MYELOID LEUKAEMIA
     Dosage: 5 MG, ONCE, INTRAVENOUS
     Route: 042
     Dates: start: 20090513, end: 20090513
  6. SIMVASTATIN [Concomitant]
  7. ATENOLOL [Concomitant]

REACTIONS (8)
  - EYE INFECTION TOXOPLASMAL [None]
  - HAEMOGLOBIN DECREASED [None]
  - NAUSEA [None]
  - NECROTISING RETINITIS [None]
  - PANCYTOPENIA [None]
  - PRESYNCOPE [None]
  - PSEUDOMONAS INFECTION [None]
  - VOMITING [None]
